FAERS Safety Report 10233243 (Version 2)
Quarter: 2014Q3

REPORT INFORMATION
  Report Type: Spontaneous
  Country: US (occurrence: US)
  Receive Date: 20140612
  Receipt Date: 20140926
  Transmission Date: 20150326
  Serious: Yes (Hospitalization, Other)
  Sender: FDA-Public Use
  Company Number: US-BAYER-2014-085691

PATIENT
  Age: 22 Year
  Sex: Female
  Weight: 108.84 kg

DRUGS (8)
  1. DOXYCYCLINE. [Concomitant]
     Active Substance: DOXYCYCLINE
  2. CLARITIN [Concomitant]
     Active Substance: LORATADINE
     Dosage: 10 MG, QD
     Route: 048
  3. IBUPROFEN. [Concomitant]
     Active Substance: IBUPROFEN
     Indication: PAIN
     Dosage: 800 MG, UNK
  4. NASONEX [Concomitant]
     Active Substance: MOMETASONE FUROATE
     Dosage: 50 ?G, BID
     Route: 045
  5. EFFEXOR [Concomitant]
     Active Substance: VENLAFAXINE HYDROCHLORIDE
     Dosage: 37.5 MG, QD
     Route: 048
  6. IBUPROFEN. [Concomitant]
     Active Substance: IBUPROFEN
     Indication: ABDOMINAL PAIN
  7. DEPO-MEDROL [Concomitant]
     Active Substance: METHYLPREDNISOLONE ACETATE
  8. MIRENA [Suspect]
     Active Substance: LEVONORGESTREL
     Indication: CONTRACEPTION
     Dosage: 20 MCG/24HR, CONT
     Route: 015
     Dates: start: 20111216, end: 20120725

REACTIONS (16)
  - Genital haemorrhage [None]
  - Depressed mood [None]
  - Injury [None]
  - Emotional distress [None]
  - Abdominal pain lower [None]
  - Internal injury [None]
  - Uterine perforation [None]
  - Medical device complication [None]
  - Abdominal pain [None]
  - Medical device discomfort [None]
  - Fear [None]
  - Device dislocation [None]
  - Device difficult to use [None]
  - Pelvic pain [None]
  - Depression [None]
  - Anxiety [None]

NARRATIVE: CASE EVENT DATE: 201206
